FAERS Safety Report 5620196-3 (Version None)
Quarter: 2008Q1

REPORT INFORMATION
  Report Type: 
  Country: None (occurrence: None)
  Receive Date: 20080208
  Receipt Date: 20080125
  Transmission Date: 20080703
  Serious: Yes (Hospitalization, Other)
  Sender: FDA-Public Use
  Company Number: JP-ROCHE-544354

PATIENT
  Age: 49 Year
  Sex: Male

DRUGS (3)
  1. COPEGUS [Suspect]
     Route: 048
     Dates: start: 20071105
  2. PEGASYS [Suspect]
     Route: 058
     Dates: start: 20071105
  3. UNSPECIFIED MEDICATION [Concomitant]
     Dosage: DRUG NAME: STOMACHIS AND DIGESTIVES

REACTIONS (3)
  - DIZZINESS [None]
  - HYPOTENSION [None]
  - LOSS OF CONSCIOUSNESS [None]
